FAERS Safety Report 10246877 (Version 2)
Quarter: 2015Q3

REPORT INFORMATION
  Report Type: Spontaneous
  Country: US (occurrence: US)
  Receive Date: 20140619
  Receipt Date: 20150717
  Transmission Date: 20151125
  Serious: Yes (Other)
  Sender: FDA-Public Use
  Company Number: US-SA-2014SA078582

PATIENT
  Age: 54 Year
  Sex: Male

DRUGS (3)
  1. PLAVIX [Suspect]
     Active Substance: CLOPIDOGREL BISULFATE
     Indication: STENT PLACEMENT
     Route: 048
     Dates: start: 200109, end: 200807
  2. ASPIRIN. [Concomitant]
     Active Substance: ASPIRIN
     Dates: start: 199803, end: 200109
  3. ASPIRIN. [Concomitant]
     Active Substance: ASPIRIN
     Dates: start: 200809

REACTIONS (4)
  - Gastrointestinal haemorrhage [Unknown]
  - Multiple injuries [Unknown]
  - Haemorrhage [Unknown]
  - Renal disorder [Unknown]

NARRATIVE: CASE EVENT DATE: 20080918
